FAERS Safety Report 5103745-3 (Version None)
Quarter: 2006Q3

REPORT INFORMATION
  Report Type: 
  Country: None (occurrence: None)
  Receive Date: 20060913
  Receipt Date: 20050926
  Transmission Date: 20061208
  Serious: Yes (Other)
  Sender: FDA-Public Use
  Company Number: PHEH2005US10683

PATIENT
  Age: 73 Year
  Sex: Female
  Weight: 49.433 kg

DRUGS (7)
  1. ZOMETA [Suspect]
     Indication: BONE DISORDER
     Dosage: UNK, UNK
     Dates: start: 20031101, end: 20040723
  2. CLINDAMYCIN [Concomitant]
     Indication: OSTEOMYELITIS
     Dosage: 300 MG, TID
     Dates: start: 20041101
  3. CLINDAMYCIN [Concomitant]
     Dosage: 300 MG, QID
     Dates: start: 20041102
  4. DEXAMETHASONE TAB [Concomitant]
     Indication: MULTIPLE MYELOMA
     Dosage: 20MG QWK
     Dates: start: 20031101, end: 20040826
  5. THALIDOMIDE [Concomitant]
     Indication: MULTIPLE MYELOMA
     Dosage: UNK, UNK
     Dates: start: 20031101, end: 20040826
  6. FOLIC ACID [Concomitant]
  7. ASPIRIN [Concomitant]

REACTIONS (30)
  - ABSCESS DRAINAGE [None]
  - BACTERIAL INFECTION [None]
  - BONE DISORDER [None]
  - BONE LESION [None]
  - BONE PAIN [None]
  - COMPRESSION FRACTURE [None]
  - CONSTIPATION [None]
  - DENTURE WEARER [None]
  - DYSAESTHESIA [None]
  - ERYTHEMA [None]
  - FISTULA [None]
  - GINGIVAL EROSION [None]
  - GINGIVAL HYPERTROPHY [None]
  - GINGIVITIS [None]
  - HYPERAESTHESIA [None]
  - MASTOIDITIS [None]
  - OEDEMA PERIPHERAL [None]
  - OSTEOMYELITIS [None]
  - OSTEONECROSIS [None]
  - OSTEOPOROSIS [None]
  - PAIN [None]
  - PARAESTHESIA [None]
  - PRIMARY SEQUESTRUM [None]
  - RESORPTION BONE INCREASED [None]
  - SPINAL COMPRESSION FRACTURE [None]
  - SWELLING [None]
  - SWELLING FACE [None]
  - TOOTH EXTRACTION [None]
  - TOOTH LOSS [None]
  - VERTEBROPLASTY [None]
